FAERS Safety Report 20773327 (Version 1)
Quarter: 2022Q2

REPORT INFORMATION
  Report Type: Spontaneous
  Country: US (occurrence: None)
  Receive Date: 20220429
  Receipt Date: 20220429
  Transmission Date: 20220721
  Serious: Yes (Death)
  Sender: FDA-Public Use
  Company Number: None

PATIENT
  Age: 72 Year
  Sex: Male
  Weight: 104.14 kg

DRUGS (20)
  1. ABIRATERONE [Suspect]
     Active Substance: ABIRATERONE
     Indication: Prostate cancer
     Dosage: OTHER FREQUENCY : EVERYEVENING ;?
     Route: 048
  2. PREDNISONE [Suspect]
     Active Substance: PREDNISONE
     Indication: Prostate cancer
     Dosage: FREQUENCY : TWICE A DAY;?
     Route: 048
  3. ADVAIR HFA [Concomitant]
  4. ALFUZOSIN HCI ER [Concomitant]
  5. ALLEGRA ALLERGY [Concomitant]
  6. ASPIRIN EC [Concomitant]
  7. ATORVASTATIN CALCIUM [Concomitant]
  8. IRON [Concomitant]
     Active Substance: IRON
  9. GLUCONATE [Concomitant]
  10. FLONASE ALLERGY [Concomitant]
  11. JANUMET ORAL [Concomitant]
  12. LISINOPRIL LUPRON DEPOT [Concomitant]
  13. METFORMIN HCI ER [Concomitant]
  14. MUCINEX PLAVIX [Concomitant]
  15. PREDNISONE [Concomitant]
  16. SPIRIVA RESPIMAT [Concomitant]
  17. VENTOLIN HFA [Concomitant]
  18. VITAMIN B12 [Concomitant]
     Active Substance: CYANOCOBALAMIN
  19. VITAMIN C [Concomitant]
  20. ZOFRAN [Concomitant]

REACTIONS (1)
  - Death [None]
